FAERS Safety Report 12312624 (Version 1)
Quarter: 2016Q2

REPORT INFORMATION
  Report Type: Other
  Country: GB (occurrence: GB)
  Receive Date: 20160428
  Receipt Date: 20160428
  Transmission Date: 20160815
  Serious: Yes (Death, Hospitalization)
  Sender: FDA-Public Use
  Company Number: GB-CIPLA LTD.-2016GB04174

PATIENT

DRUGS (4)
  1. PARACETAMOL [Concomitant]
     Active Substance: ACETAMINOPHEN
     Dosage: UNK
     Route: 065
  2. WARFARIN [Suspect]
     Active Substance: WARFARIN
     Indication: ATRIAL FIBRILLATION
     Dosage: UNK
     Route: 065
  3. TRAMADOL. [Concomitant]
     Active Substance: TRAMADOL
     Dosage: UNK
     Route: 065
  4. DAKTARIN [Suspect]
     Active Substance: MICONAZOLE NITRATE
     Indication: ORAL CANDIDIASIS
     Dosage: UNK, TWO TO THREE TIMES PER DAY
     Route: 048
     Dates: start: 20131021, end: 20131030

REACTIONS (5)
  - Hemiplegia [Not Recovered/Not Resolved]
  - Cerebral haemorrhage [Fatal]
  - Facial paralysis [Not Recovered/Not Resolved]
  - Drug interaction [Not Recovered/Not Resolved]
  - International normalised ratio increased [Not Recovered/Not Resolved]

NARRATIVE: CASE EVENT DATE: 20131030
